FAERS Safety Report 9233642 (Version 2)
Quarter: 2013Q3

REPORT INFORMATION
  Report Type: Spontaneous
  Country: BR (occurrence: BR)
  Receive Date: 20130416
  Receipt Date: 20130826
  Transmission Date: 20140515
  Serious: Yes (Other)
  Sender: FDA-Public Use
  Company Number: PHHY2013BR035995

PATIENT
  Sex: Female

DRUGS (8)
  1. DICLOFENAC [Suspect]
     Dosage: UNK UKN, UNK
  2. PAROXETINE [Suspect]
     Dosage: UNK UKN, UNK
  3. NIMESULIDE [Suspect]
     Dosage: UNK UKN, UNK
  4. RIVOTRIL [Suspect]
     Dosage: UNK UKN, UNK
  5. ROHYPNOL [Suspect]
     Dosage: UNK UKN, UNK
  6. SCAFLAM [Suspect]
     Dosage: UNK UKN, UNK
  7. TYLEX [Suspect]
     Dosage: UNK UKN, UNK
  8. LYRICA [Suspect]
     Dosage: 75 MG, EVERY 12 HOURS

REACTIONS (4)
  - Fibromyalgia [Unknown]
  - Tongue disorder [Not Recovered/Not Resolved]
  - Arthralgia [Not Recovered/Not Resolved]
  - Drug ineffective [Unknown]
